FAERS Safety Report 6085779-8 (Version None)
Quarter: 2009Q1

REPORT INFORMATION
  Report Type: 
  Country: None (occurrence: None)
  Receive Date: 20090217
  Receipt Date: 20080123
  Transmission Date: 20090719
  Serious: Yes (Other)
  Sender: FDA-Public Use
  Company Number: MC200800050

PATIENT
  Age: 50 Year
  Sex: Male
  Weight: 90.7 kg

DRUGS (4)
  1. ANGIOMAX [Suspect]
     Indication: PERCUTANEOUS CORONARY INTERVENTION
     Dosage: 13.5 ML (5MG/ML),BOLUS,IV BOLUS; 31.5 ML (5MG/ML),HR INTRAVENOUS
     Route: 040
     Dates: start: 20080122, end: 20080122
  2. ANGIOMAX [Suspect]
     Indication: PERCUTANEOUS CORONARY INTERVENTION
     Dosage: 13.5 ML (5MG/ML),BOLUS,IV BOLUS; 31.5 ML (5MG/ML),HR INTRAVENOUS
     Route: 040
     Dates: start: 20080122, end: 20080122
  3. PLAVIX [Concomitant]
  4. ASA (ACETYLSALCYLIC ACID) [Concomitant]

REACTIONS (3)
  - CHEST PAIN [None]
  - COMPLICATION OF DEVICE INSERTION [None]
  - CORONARY ARTERY THROMBOSIS [None]
